FAERS Safety Report 5536564-4 (Version None)
Quarter: 2007Q4

REPORT INFORMATION
  Report Type: 
  Country: None (occurrence: None)
  Receive Date: 20071204
  Receipt Date: 20071116
  Transmission Date: 20080405
  Serious: Yes (Hospitalization)
  Sender: FDA-Public Use
  Company Number: DSA_30923_2007

PATIENT
  Age: 31 Year
  Sex: Female

DRUGS (3)
  1. LORAZEPAM [Suspect]
     Dosage: 1 DF 1X NOT THE PRESCRIBED AMOUNT. ORAL
     Route: 048
     Dates: start: 20071115, end: 20071115
  2. SEROQUEL [Suspect]
     Dosage: 3 DF 1X NOT THE PRESCRIBED AMOUNT. ORAL
     Route: 048
     Dates: start: 20071115, end: 20071115
  3. TRICYCLIC ANTIDEPRESSANTS (TRICYCLIC ANTIDEPRESSANT) [Suspect]
     Dosage: NOT THE PRESCRIBED AMOUNT ORAL
     Route: 048
     Dates: start: 20071115, end: 20071115

REACTIONS (2)
  - ACCIDENTAL OVERDOSE [None]
  - DYSARTHRIA [None]
